FAERS Safety Report 21067202 (Version 2)
Quarter: 2022Q3

REPORT INFORMATION
  Report Type: Other
  Country: US (occurrence: None)
  Receive Date: 20220712
  Receipt Date: 20220714
  Transmission Date: 20221026
  Serious: No
  Sender: FDA-Public Use
  Company Number: US-ROCHE-3136161

PATIENT
  Age: 36 Year
  Sex: Female
  Weight: 95.340 kg

DRUGS (4)
  1. OCREVUS [Suspect]
     Active Substance: OCRELIZUMAB
     Indication: Relapsing-remitting multiple sclerosis
     Dosage: (PRESCRIBED AS 300 MG IV AT 0 AND 2 WEEKS AND 600 MG IV Q 6 MONTH)
     Route: 042
     Dates: start: 202111
  2. DEXAMETHASONE [Suspect]
     Active Substance: DEXAMETHASONE
     Indication: COVID-19
     Dosage: 3 DAYS
     Route: 065
     Dates: start: 202206, end: 202206
  3. TOPAMAX [Concomitant]
     Active Substance: TOPIRAMATE
     Indication: Intracranial pressure increased
     Route: 048
     Dates: start: 202206
  4. ALLEGRA [Concomitant]
     Active Substance: FEXOFENADINE HYDROCHLORIDE
     Indication: Seasonal allergy
     Route: 048
     Dates: start: 2021

REACTIONS (3)
  - COVID-19 [Recovered/Resolved]
  - Headache [Recovered/Resolved]
  - Vision blurred [Recovered/Resolved]

NARRATIVE: CASE EVENT DATE: 20220601
